FAERS Safety Report 8798229 (Version 1)
Quarter: 2012Q4

REPORT INFORMATION
  Report Type: Spontaneous
  Country: US (occurrence: None)
  Receive Date: 20120917
  Receipt Date: 20120917
  Transmission Date: 20130627
  Serious: Yes (Disabling)
  Sender: FDA-Public Use
  Company Number: None

PATIENT
  Age: 56 Year
  Sex: Female
  Weight: 50.8 kg

DRUGS (2)
  1. THIOTHIXENE [Suspect]
     Indication: DEPRESSION
     Dosage: 1 cap at bedtime 1 daily po
     Route: 048
     Dates: start: 20110401, end: 20120809
  2. THIOTHIXENE [Suspect]
     Indication: ANXIETY
     Dosage: 1 cap at bedtime 1 daily po
     Route: 048
     Dates: start: 20110401, end: 20120809

REACTIONS (1)
  - Tardive dyskinesia [None]
